FAERS Safety Report 19135721 (Version 1)
Quarter: 2021Q2

REPORT INFORMATION
  Report Type: Spontaneous
  Country: RO (occurrence: RO)
  Receive Date: 20210414
  Receipt Date: 20210414
  Transmission Date: 20210717
  Serious: Yes (Hospitalization)
  Sender: FDA-Public Use
  Company Number: RO-PFIZER INC-2021371741

PATIENT
  Age: 68 Year
  Sex: Male

DRUGS (9)
  1. TRIMETAZIDINE [Concomitant]
     Active Substance: TRIMETAZIDINE
     Indication: CARDIAC DISORDER
     Dosage: UNK
     Route: 065
  2. DILVAS [CILOSTAZOL] [Suspect]
     Active Substance: CILOSTAZOL
     Dosage: TWO TABLETS PER DAY, ONE IN THE MORNING AND ONE IN THE EVENING
     Route: 048
     Dates: start: 20210306
  3. LEVOTHYROXINE. [Concomitant]
     Active Substance: LEVOTHYROXINE
     Indication: THYROID DISORDER
     Dosage: THREE QUARTERS OF A TABLET PER DAY
     Route: 065
  4. ATORVASTATIN CALCIUM. [Suspect]
     Active Substance: ATORVASTATIN CALCIUM
     Indication: HYPERCHOLESTEROLAEMIA
     Dosage: UNK
     Route: 065
     Dates: start: 20210302
  5. THIAMAZOL [Concomitant]
     Active Substance: METHIMAZOLE
     Indication: THYROID DISORDER
     Dosage: A QUARTER OF A TABLET PER DAY
     Route: 065
  6. BISOPROLOL [Concomitant]
     Active Substance: BISOPROLOL
     Indication: CARDIAC DISORDER
     Dosage: UNK
     Route: 065
  7. ACENOCOUMAROL [Suspect]
     Active Substance: ACENOCOUMAROL
     Dosage: THE PATIENT TAKES NOW ONLY A QUARTER OF A TABLET PER DAY. HE INTERRUPTED THE MEDICINE DURING HOSPITA
     Route: 065
  8. ACENOCOUMAROL [Suspect]
     Active Substance: ACENOCOUMAROL
     Dosage: 3/4 TABLET PER DAY
     Route: 065
  9. DILVAS [CILOSTAZOL] [Suspect]
     Active Substance: CILOSTAZOL
     Indication: PERIPHERAL ARTERIAL OCCLUSIVE DISEASE
     Dosage: FOR 4 MONTHS, AFTER THAT HE DECIDED BY HIMSELF TO INTERRUPT THE TREATMENT TEMPORARILY FOR ONE MONTH.
     Route: 048

REACTIONS (1)
  - International normalised ratio increased [Recovered/Resolved]

NARRATIVE: CASE EVENT DATE: 20210323
